FAERS Safety Report 23924879 (Version 1)
Quarter: 2024Q2

REPORT INFORMATION
  Report Type: Spontaneous
  Country: US (occurrence: US)
  Receive Date: 20240531
  Receipt Date: 20240531
  Transmission Date: 20240716
  Serious: Yes (Hospitalization, Other)
  Sender: FDA-Public Use
  Company Number: US-AUROBINDO-AUR-APL-2024-025541

PATIENT
  Age: 65 Year
  Sex: Female

DRUGS (1)
  1. CLOZAPINE [Suspect]
     Active Substance: CLOZAPINE
     Indication: Product used for unknown indication
     Dosage: UNK
     Route: 048

REACTIONS (7)
  - Schizophrenia [Unknown]
  - Hallucination, auditory [Unknown]
  - Mental disorder [Unknown]
  - Tachyphrenia [Unknown]
  - Mania [Unknown]
  - Sleep disorder [Unknown]
  - Treatment noncompliance [Unknown]
